FAERS Safety Report 8055397-0 (Version None)
Quarter: 2011Q4

REPORT INFORMATION
  Report Type: 
  Country: None (occurrence: None)
  Receive Date: 20111213
  Receipt Date: 20111108
  Transmission Date: 20120403
  Serious: No
  Sender: FDA-Public Use
  Company Number: 2011SP052612

PATIENT
  Age: 48 Year
  Sex: Female

DRUGS (7)
  1. LEVOTHYROXINE SODIUM [Concomitant]
  2. SAPHRIS [Suspect]
     Indication: MENTAL DISORDER
     Dosage: 5 MG;QD;SL
     Route: 060
     Dates: start: 20111102
  3. TRAMADOL HCL [Concomitant]
  4. AMBIEN [Concomitant]
  5. REMERON [Concomitant]
  6. SEROQUEL XR [Concomitant]
  7. XANAX [Concomitant]

REACTIONS (2)
  - HYPOAESTHESIA [None]
  - UNDERDOSE [None]
